FAERS Safety Report 12433624 (Version 3)
Quarter: 2016Q3

REPORT INFORMATION
  Report Type: Report from Study
  Country: DE (occurrence: DE)
  Receive Date: 20160603
  Receipt Date: 20160724
  Transmission Date: 20161109
  Serious: Yes (Life-Threatening, Disabling, Other)
  Sender: FDA-Public Use
  Company Number: DE-009507513-1606DEU000608

PATIENT
  Age: 75 Year
  Sex: Female
  Weight: 102 kg

DRUGS (10)
  1. DOXAZOSIN [Interacting]
     Active Substance: DOXAZOSIN\DOXAZOSIN MESYLATE
     Indication: HYPERTENSION
     Dosage: 2 MG, QD
     Route: 048
     Dates: start: 20160205, end: 20160331
  2. CYTARABINE. [Concomitant]
     Active Substance: CYTARABINE
     Indication: ACUTE MYELOID LEUKAEMIA
     Dosage: 210 MG, UNK
     Dates: start: 20160309
  3. NOXAFIL [Suspect]
     Active Substance: POSACONAZOLE
     Indication: ANTIFUNGAL PROPHYLAXIS
     Dosage: 5 ML, TID
     Route: 048
     Dates: start: 20160208, end: 20160413
  4. CONCOR [Interacting]
     Active Substance: BISOPROLOL FUMARATE
     Dosage: 2.5 MG, BID
     Route: 048
     Dates: start: 20160408, end: 20160416
  5. TRETINOIN. [Concomitant]
     Active Substance: TRETINOIN
     Indication: ACUTE MYELOID LEUKAEMIA
     Dosage: 90 MG, CYCLICAL (DAYS 6-8)
     Dates: start: 20160314
  6. CONCOR [Interacting]
     Active Substance: BISOPROLOL FUMARATE
     Indication: HYPERTENSION
     Dosage: 2.5 MG, BID
     Route: 048
     Dates: start: 20160221, end: 20160406
  7. IDARUBICIN HYDROCHLORIDE. [Concomitant]
     Active Substance: IDARUBICIN HYDROCHLORIDE
     Indication: ACUTE MYELOID LEUKAEMIA
     Dosage: 25 MG, CYCLICAL (DAYS 1+3)
     Dates: start: 20160309
  8. GEMTUZUMAB OZOGAMICIN [Suspect]
     Active Substance: GEMTUZUMAB OZOGAMICIN
     Indication: ACUTE MYELOID LEUKAEMIA
     Dosage: 6 MG, UNK
     Dates: start: 20160311
  9. ETOPOSIDE. [Concomitant]
     Active Substance: ETOPOSIDE
     Indication: ACUTE MYELOID LEUKAEMIA
     Dosage: 210 MG, CYCLICAL (DAYS 1+3)
     Dates: start: 20160309
  10. TRETINOIN. [Concomitant]
     Active Substance: TRETINOIN
     Dosage: 80 MG, CYCLICAL (DAYS 9-21)
     Dates: start: 20160314

REACTIONS (6)
  - Cholelithiasis [Unknown]
  - Drug interaction [Unknown]
  - Brain injury [Recovering/Resolving]
  - Ventricular fibrillation [Recovered/Resolved with Sequelae]
  - Electrocardiogram QT prolonged [Unknown]
  - Bundle branch block right [Unknown]

NARRATIVE: CASE EVENT DATE: 2016
